FAERS Safety Report 10455562 (Version 1)
Quarter: 2014Q3

REPORT INFORMATION
  Report Type: Spontaneous
  Country: US (occurrence: None)
  Receive Date: 20140912
  Receipt Date: 20140912
  Transmission Date: 20150326
  Serious: Yes (Hospitalization, Other)
  Sender: FDA-Public Use
  Company Number: NL01PV14.37173

PATIENT
  Age: 16 Year
  Sex: Female

DRUGS (5)
  1. PENTOBARBITAL [Suspect]
     Active Substance: PENTOBARBITAL
     Indication: SUICIDE ATTEMPT
  2. PHENOBARBITAL. [Suspect]
     Active Substance: PHENOBARBITAL
  3. ONDANSETRON [Suspect]
     Active Substance: ONDANSETRON
     Indication: SUICIDE ATTEMPT
  4. ALCOHOL (ETHANOL) [Suspect]
     Active Substance: ALCOHOL
     Indication: SUICIDE ATTEMPT
     Dosage: (A BEER)
  5. ZOLPIDEM [Suspect]
     Active Substance: ZOLPIDEM\ZOLPIDEM TARTRATE
     Indication: SUICIDE ATTEMPT

REACTIONS (7)
  - Coma [None]
  - Intentional overdose [None]
  - Respiratory depression [None]
  - Blister [None]
  - Chills [None]
  - Hypotension [None]
  - Pallor [None]
